FAERS Safety Report 14732831 (Version 1)
Quarter: 2018Q2

REPORT INFORMATION
  Report Type: Spontaneous
  Country: US (occurrence: US)
  Receive Date: 20180409
  Receipt Date: 20180409
  Transmission Date: 20180711
  Serious: No
  Sender: FDA-Public Use
  Company Number: US-PFIZER INC-2018140153

PATIENT
  Age: 25 Year
  Sex: Female

DRUGS (2)
  1. XELJANZ XR [Suspect]
     Active Substance: TOFACITINIB CITRATE
     Dosage: 11 MG, DAILY
  2. METHOTREXATE SODIUM. [Suspect]
     Active Substance: METHOTREXATE SODIUM
     Dosage: 15 MG, WEEKLY
     Route: 058

REACTIONS (9)
  - Dermatitis allergic [Unknown]
  - Bronchitis [Unknown]
  - Back injury [Unknown]
  - Rash [Unknown]
  - Upper respiratory tract infection [Unknown]
  - Sinusitis [Unknown]
  - Road traffic accident [Unknown]
  - Neck injury [Unknown]
  - Nodule [Unknown]

NARRATIVE: CASE EVENT DATE: 20170919
